FAERS Safety Report 6226609-0 (Version None)
Quarter: 2009Q2

REPORT INFORMATION
  Report Type: 
  Country: None (occurrence: None)
  Receive Date: 20090612
  Receipt Date: 20090518
  Transmission Date: 20091009
  Serious: Yes (Other)
  Sender: FDA-Public Use
  Company Number: US-ABBOTT-09P-163-0574407-00

PATIENT
  Sex: Female
  Weight: 145.28 kg

DRUGS (10)
  1. HUMIRA [Suspect]
     Indication: PSORIASIS
     Dates: start: 20090517
  2. HUMIRA [Suspect]
     Route: 058
     Dates: start: 20070801, end: 20090330
  3. SYNTHROID [Concomitant]
     Indication: HYPOTHYROIDISM
     Route: 048
  4. LISINOPRIL [Concomitant]
     Indication: HYPERTENSION
     Route: 048
  5. ACIPHEX [Concomitant]
     Indication: GASTROOESOPHAGEAL REFLUX DISEASE
     Route: 048
  6. BENTYL [Concomitant]
     Indication: IRRITABLE BOWEL SYNDROME
     Route: 048
  7. LIBRAX [Concomitant]
     Indication: IRRITABLE BOWEL SYNDROME
     Route: 048
  8. DEPO-PROVERA [Concomitant]
     Indication: ENDOMETRIOSIS
     Route: 050
  9. CLARINEX [Concomitant]
     Indication: SEASONAL ALLERGY
     Route: 048
  10. ZOLOFT [Concomitant]
     Indication: DEPRESSION
     Route: 048

REACTIONS (3)
  - ARTHRALGIA [None]
  - PSORIATIC ARTHROPATHY [None]
  - SINUSITIS [None]
